FAERS Safety Report 10224692 (Version 2)
Quarter: 2014Q2

REPORT INFORMATION
  Report Type: Spontaneous
  Country: CA (occurrence: CA)
  Receive Date: 20140609
  Receipt Date: 20140609
  Transmission Date: 20141212
  Serious: Yes (Disabling)
  Sender: FDA-Public Use
  Company Number: CA-TAKEDA-2014TUS003416

PATIENT
  Age: 47 Year
  Sex: Female

DRUGS (1)
  1. DEXILANT [Suspect]
     Dosage: 30 MG, A SINGLE DOSE
     Route: 048
     Dates: start: 20121209

REACTIONS (3)
  - Daydreaming [Recovered/Resolved]
  - Feeling abnormal [Recovered/Resolved]
  - Throat tightness [Recovered/Resolved]
